FAERS Safety Report 6188943-2 (Version None)
Quarter: 2009Q2

REPORT INFORMATION
  Report Type: 
  Country: None (occurrence: None)
  Receive Date: 20090513
  Receipt Date: 20090505
  Transmission Date: 20091009
  Serious: Yes (Other)
  Sender: FDA-Public Use
  Company Number: PHEH2009US04481

PATIENT
  Sex: Female

DRUGS (9)
  1. RECLAST [Suspect]
     Indication: OSTEOPOROSIS
     Dosage: 5 MG, UNK
     Route: 042
     Dates: start: 20081101
  2. COZAAR [Concomitant]
  3. ASPIRIN [Concomitant]
  4. ZOCOR [Concomitant]
  5. PLETAL [Concomitant]
  6. CALTRATE [Concomitant]
  7. ACIPHEX [Concomitant]
  8. BENEFIBER [Concomitant]
  9. METOPROLOL [Concomitant]

REACTIONS (4)
  - AMNESIA [None]
  - CATARACT [None]
  - HEADACHE [None]
  - HYPOACUSIS [None]
